FAERS Safety Report 19391634 (Version 2)
Quarter: 2021Q3

REPORT INFORMATION
  Report Type: Spontaneous
  Country: US (occurrence: US)
  Receive Date: 20210609
  Receipt Date: 20210901
  Transmission Date: 20211014
  Serious: No
  Sender: FDA-Public Use
  Company Number: US-SA-2021SA189251

PATIENT
  Age: 26 Year
  Sex: Male

DRUGS (4)
  1. DUPIXENT [Suspect]
     Active Substance: DUPILUMAB
     Indication: DERMATITIS ATOPIC
     Dosage: 300 MG, QOW
     Route: 058
     Dates: end: 20210508
  2. DUPIXENT [Suspect]
     Active Substance: DUPILUMAB
     Indication: NEURODERMATITIS
  3. DUPIXENT [Suspect]
     Active Substance: DUPILUMAB
     Indication: ILLNESS
  4. ACCUTANE [Concomitant]
     Active Substance: ISOTRETINOIN

REACTIONS (3)
  - Rash [Unknown]
  - Product use in unapproved indication [Unknown]
  - Injection site bruising [Unknown]

NARRATIVE: CASE EVENT DATE: 2021
